FAERS Safety Report 23289616 (Version 3)
Quarter: 2023Q4

REPORT INFORMATION
  Report Type: Other
  Country: US (occurrence: None)
  Receive Date: 20231212
  Receipt Date: 20231227
  Transmission Date: 20240110
  Serious: Yes (Death)
  Sender: FDA-Public Use
  Company Number: US-ROCHE-3473183

PATIENT
  Age: 77 Year
  Sex: Male

DRUGS (14)
  1. ESBRIET [Suspect]
     Active Substance: PIRFENIDONE
     Indication: Idiopathic pulmonary fibrosis
     Dosage: TAKE 3 TABLETS BY MOUTH THREE (3) TIMES A DAY.
     Route: 048
  2. ESBRIET [Suspect]
     Active Substance: PIRFENIDONE
     Indication: Acute respiratory failure
  3. ESBRIET [Suspect]
     Active Substance: PIRFENIDONE
     Indication: Chronic respiratory failure
  4. ESBRIET [Suspect]
     Active Substance: PIRFENIDONE
     Indication: Hypoxia
  5. ESBRIET [Suspect]
     Active Substance: PIRFENIDONE
     Indication: Idiopathic pulmonary fibrosis
     Dosage: TAKE 3 CAP BY MOUTH THREE TIMES A DAY.
     Route: 048
     Dates: start: 201911
  6. BACTRIM [Concomitant]
     Active Substance: SULFAMETHOXAZOLE\TRIMETHOPRIM
     Dosage: 400-80 MG, 1 TAB BY MOUTH EVENY MONDAY WEDNESDAY AND FRIDAY AT 1600
     Route: 048
  7. TYLENOL [Concomitant]
     Active Substance: ACETAMINOPHEN
     Dosage: BY MOUTH DAILY AS NEEDED
     Route: 048
  8. IMURAN [Concomitant]
     Active Substance: AZATHIOPRINE
     Dosage: 2 TAB BY MOUTH DAILY
     Route: 048
  9. ZITHROMAX [Concomitant]
     Active Substance: AZITHROMYCIN DIHYDRATE
     Dosage: 1 TAB BY MOUTH DAILY
     Route: 048
  10. ALPHAGAN P [Concomitant]
     Active Substance: BRIMONIDINE TARTRATE
     Dosage: 1 DROP IN TO LEFT EYE TWICE A DAY
     Route: 047
  11. TUMS [Concomitant]
     Active Substance: CALCIUM CARBONATE
     Dosage: TAB CHEWABLE 200 MG CALCIUM (500 MG) 2 TAB DAILY AS NEEDED. HEARTBUM
  12. PEPCID [Concomitant]
     Active Substance: FAMOTIDINE
     Dosage: BY MOUTH NIGHTLY
     Route: 048
  13. BACTROBAN [Concomitant]
     Active Substance: MUPIROCIN CALCIUM
     Dosage: APPLY ON SKIN DAILY
  14. DELTASONE [Concomitant]
     Active Substance: PREDNISONE
     Dosage: 4 TAB BY MOUTH DAILY
     Route: 048

REACTIONS (1)
  - Death [Fatal]

NARRATIVE: CASE EVENT DATE: 20231121
